FAERS Safety Report 13647738 (Version 3)
Quarter: 2017Q3

REPORT INFORMATION
  Report Type: Spontaneous
  Country: CA (occurrence: CA)
  Receive Date: 20170613
  Receipt Date: 20170727
  Transmission Date: 20171127
  Serious: Yes (Hospitalization, Other)
  Sender: FDA-Public Use
  Company Number: CA-PFIZER INC-2017105915

PATIENT
  Age: 20 Year
  Sex: Female
  Weight: 64 kg

DRUGS (10)
  1. INFLECTRA [Suspect]
     Active Substance: INFLIXIMAB-DYYB
     Dosage: 570 MG, CYCLIC EVERY 8 WEEKS
     Route: 042
  2. BENADRYL [Suspect]
     Active Substance: DIPHENHYDRAMINE HYDROCHLORIDE
     Dosage: UNK
     Route: 042
  3. PENTASA [Concomitant]
     Active Substance: MESALAMINE
     Dosage: 1 G, 4X/DAY
     Dates: start: 201611
  4. BUSCOPAN [Concomitant]
     Active Substance: BUTYLSCOPOLAMINE BROMIDE
     Dosage: 10 MG, 3X/DAY
     Dates: start: 2017
  5. PREDNISONE. [Concomitant]
     Active Substance: PREDNISONE
     Dosage: 35 MG, 1X/DAY
     Route: 048
     Dates: start: 20170227
  6. SOLU-CORTEF [Suspect]
     Active Substance: HYDROCORTISONE SODIUM SUCCINATE
     Indication: PREMEDICATION
     Dosage: 100 MG, UNK
     Route: 042
  7. 5-ASA [Concomitant]
     Active Substance: MESALAMINE
     Dosage: 4.8 G, FOR 4 MONTHS
     Dates: start: 2016
  8. NYSTATIN. [Concomitant]
     Active Substance: NYSTATIN
     Indication: CANDIDA INFECTION
     Dosage: 1 ML, 3X/DAY
     Route: 048
     Dates: start: 2015, end: 20170307
  9. INFLECTRA [Suspect]
     Active Substance: INFLIXIMAB-DYYB
     Indication: COLITIS ULCERATIVE
     Dosage: 300 MG, CYCLIC (EVERY 0, 2, 6 WEEKS, THEN EVERY 8 WEEKS FOR 12 MONTHS)
     Route: 042
     Dates: start: 20170227
  10. METHYLPREDNISOLONE. [Concomitant]
     Active Substance: METHYLPREDNISOLONE
     Dosage: 30 MG, 2X/DAY
     Dates: start: 201703

REACTIONS (18)
  - Mucous stools [Not Recovered/Not Resolved]
  - Constipation [Unknown]
  - Anal incontinence [Unknown]
  - Quality of life decreased [Recovering/Resolving]
  - Throat tightness [Recovered/Resolved]
  - Back pain [Not Recovered/Not Resolved]
  - Fatigue [Unknown]
  - Abdominal pain lower [Not Recovered/Not Resolved]
  - Incorrect drug administration rate [Unknown]
  - Haematochezia [Not Recovered/Not Resolved]
  - Rash erythematous [Recovering/Resolving]
  - Abdominal pain [Recovered/Resolved]
  - Drug effect incomplete [Unknown]
  - Weight increased [Unknown]
  - Dysphonia [Recovered/Resolved]
  - Condition aggravated [Recovering/Resolving]
  - Pruritus [Unknown]
  - Wrong technique in product usage process [Unknown]

NARRATIVE: CASE EVENT DATE: 2017
